FAERS Safety Report 8202487-5 (Version None)
Quarter: 2012Q1

REPORT INFORMATION
  Report Type: 
  Country: None (occurrence: None)
  Receive Date: 20120312
  Receipt Date: 20120227
  Transmission Date: 20120608
  Serious: Yes (Other)
  Sender: FDA-Public Use
  Company Number: US-PFIZER INC-2012032352

PATIENT

DRUGS (10)
  1. ASPIRIN [Concomitant]
     Dosage: UNK
  2. CORDARONE [Suspect]
     Dosage: 400 MG, 2X/DAY
     Route: 048
  3. CORDARONE [Suspect]
     Dosage: 100 MG, 2X/DAY
     Route: 048
  4. METOPROLOL [Concomitant]
     Dosage: UNK
  5. CODEINE [Concomitant]
  6. CORDARONE [Suspect]
     Indication: ATRIAL FIBRILLATION
     Dosage: 800 MG, 2X/DAY
     Route: 048
  7. OMEPRAZOLE [Concomitant]
     Dosage: UNK
  8. COUMADIN [Concomitant]
     Dosage: UNK
  9. CEPHALOSPORINS AND RELATED SUBSTANCES [Concomitant]
  10. ROSUVASTATIN CALCIUM [Concomitant]
     Dosage: UNK

REACTIONS (8)
  - HEADACHE [None]
  - TREMOR [None]
  - COUGH [None]
  - ATAXIA [None]
  - FALL [None]
  - NAUSEA [None]
  - VOMITING [None]
  - CONSTIPATION [None]
